FAERS Safety Report 10042217 (Version 1)
Quarter: 2014Q1

REPORT INFORMATION
  Report Type: Spontaneous
  Country: FR (occurrence: FR)
  Receive Date: 20140327
  Receipt Date: 20140327
  Transmission Date: 20141002
  Serious: Yes (Other)
  Sender: FDA-Public Use
  Company Number: PHHY2014FR036971

PATIENT
  Age: 43 Year
  Sex: Female

DRUGS (1)
  1. TEGRETOL [Suspect]
     Indication: BIPOLAR DISORDER
     Dosage: 400 MG, QD
     Route: 048
     Dates: start: 201402, end: 20140312

REACTIONS (2)
  - Neutropenia [Not Recovered/Not Resolved]
  - Rash [Not Recovered/Not Resolved]
